FAERS Safety Report 8643741 (Version 2)
Quarter: 2013Q2

REPORT INFORMATION
  Report Type: Report from Study
  Country: BR (occurrence: BR)
  Receive Date: 20120629
  Receipt Date: 20130404
  Transmission Date: 20140414
  Serious: Yes (Other)
  Sender: FDA-Public Use
  Company Number: BR-ROCHE-1070228

PATIENT
  Age: 75 Year
  Sex: Female
  Weight: 52 kg

DRUGS (6)
  1. RITUXIMAB [Suspect]
     Indication: PRODUCT USED FOR UNKNOWN INDICATION
     Route: 042
     Dates: start: 201008
  2. CORUS H [Concomitant]
     Route: 065
  3. DIVELOL [Concomitant]
     Route: 065
  4. GLIFAGE [Concomitant]
     Route: 065
  5. ARAVA [Concomitant]
     Route: 065
  6. MONOCORDIL [Concomitant]
     Route: 065

REACTIONS (6)
  - Dengue fever [Recovering/Resolving]
  - Diabetes mellitus [Not Recovered/Not Resolved]
  - Somnolence [Recovering/Resolving]
  - Headache [Recovering/Resolving]
  - Platelet count decreased [Recovering/Resolving]
  - Pain [Unknown]
